FAERS Safety Report 5431945-1 (Version None)
Quarter: 2007Q3

REPORT INFORMATION
  Report Type: 
  Country: None (occurrence: None)
  Receive Date: 20070731
  Receipt Date: 20070516
  Transmission Date: 20080115
  Serious: No
  Sender: FDA-Public Use
  Company Number: US200705004453

PATIENT
  Age: 64 Year
  Sex: Female

DRUGS (3)
  1. BYETTA [Suspect]
     Indication: TYPE 2 DIABETES MELLITUS
     Dosage: 5 UG, 2/D, SUBCUTANEOUS
     Dates: start: 20070401
  2. METFORMIN HCL [Concomitant]
  3. GLYBURIDE [Concomitant]

REACTIONS (6)
  - CONSTIPATION [None]
  - DRUG EFFECT DECREASED [None]
  - FLANK PAIN [None]
  - MICTURITION FREQUENCY DECREASED [None]
  - NAUSEA [None]
  - URINE OUTPUT DECREASED [None]
